FAERS Safety Report 5168470-1 (Version None)
Quarter: 2006Q4

REPORT INFORMATION
  Report Type: 
  Country: None (occurrence: None)
  Receive Date: 20061208
  Receipt Date: 20061129
  Transmission Date: 20070319
  Serious: Yes (Hospitalization)
  Sender: FDA-Public Use
  Company Number: FR-NOVOPROD-258914

PATIENT
  Age: 77 Year
  Sex: Male

DRUGS (11)
  1. NOVONORM [Suspect]
     Indication: DIABETES MELLITUS
     Dosage: 6 MG, QD
     Route: 048
     Dates: start: 20060101, end: 20061102
  2. NOVONORM [Suspect]
     Dosage: 1 MG, UNK
     Dates: start: 20061102
  3. COLCHIMAX                          /00728901/ [Concomitant]
     Dosage: 1 MG, QD
     Route: 048
  4. APROVEL [Concomitant]
     Indication: HYPERTENSION
     Dosage: 300 MG, QD
     Route: 048
  5. TAHOR [Concomitant]
     Indication: HYPERLIPIDAEMIA
     Dosage: 60 MG, QD
     Route: 048
  6. CERIS [Concomitant]
     Indication: URINARY INCONTINENCE
     Dosage: 40 MG, QD
     Route: 048
  7. PLAVIX [Concomitant]
     Indication: ARTERIOSCLEROSIS CORONARY ARTERY
     Dosage: 75 MG, QD
     Route: 048
  8. SERMION                            /00396401/ [Concomitant]
  9. DUPHALAC                           /00163401/ [Concomitant]
  10. CHONDROSULF [Concomitant]
  11. STILNOX                            /00914901/ [Concomitant]

REACTIONS (5)
  - ABDOMINAL PAIN [None]
  - CONSTIPATION [None]
  - DYSARTHRIA [None]
  - HEMIPARESIS [None]
  - HYPOGLYCAEMIA [None]
